FAERS Safety Report 4356031-3 (Version None)
Quarter: 2004Q2

REPORT INFORMATION
  Report Type: 
  Country: None (occurrence: None)
  Receive Date: 20040511
  Receipt Date: 20040430
  Transmission Date: 20050107
  Serious: Yes (Death)
  Sender: FDA-Public Use
  Company Number: CA-ROCHE-366413

PATIENT
  Age: 16 Year
  Sex: Male

DRUGS (2)
  1. ACCUTANE [Suspect]
     Indication: DRUG USE FOR UNKNOWN INDICATION
     Route: 065
  2. ZYPREXA [Concomitant]

REACTIONS (1)
  - COMPLETED SUICIDE [None]
